FAERS Safety Report 5118571-9 (Version None)
Quarter: 2006Q4

REPORT INFORMATION
  Report Type: 
  Country: None (occurrence: None)
  Receive Date: 20061002
  Receipt Date: 20060925
  Transmission Date: 20070319
  Serious: Yes (Death)
  Sender: FDA-Public Use
  Company Number: 2006SE05177

PATIENT
  Age: 56 Year
  Sex: Female

DRUGS (3)
  1. SEROQUEL [Suspect]
     Indication: SCHIZOPHRENIA
     Route: 048
     Dates: start: 20060911
  2. AMITREX [Concomitant]
  3. RIVOTRIL [Concomitant]
     Indication: SCHIZOPHRENIA
     Route: 048
     Dates: start: 20060911

REACTIONS (7)
  - ALANINE AMINOTRANSFERASE INCREASED [None]
  - ASPARTATE AMINOTRANSFERASE INCREASED [None]
  - ELECTROCARDIOGRAM QT PROLONGED [None]
  - FALL [None]
  - MYOCARDIAL INFARCTION [None]
  - SOMNOLENCE [None]
  - SUDDEN CARDIAC DEATH [None]
